FAERS Safety Report 26080662 (Version 1)
Quarter: 2025Q4

REPORT INFORMATION
  Report Type: Spontaneous
  Country: GB (occurrence: GB)
  Receive Date: 20251124
  Receipt Date: 20251124
  Transmission Date: 20260119
  Serious: Yes (Other)
  Sender: ACCORD
  Company Number: None

PATIENT
  Age: 69 Year
  Sex: Female

DRUGS (15)
  1. ETOPOSIDE [Suspect]
     Active Substance: ETOPOSIDE
     Indication: Product used for unknown indication
     Dosage: STRENGTH: 500MG/25ML, VIALS, 09-OCT-2025 CYCLE 2 DAY 2 DC 350 MG ORAL 200 MG/MY
  2. CHLORPHENIRAMINE MALEATE [Concomitant]
     Active Substance: CHLORPHENIRAMINE MALEATE
     Dosage: STRENGTH: 4MG, 29-OCT-2025 CYCLE 3 DAY 1 10 MG IV INJ FLUSH
  3. OMEPRAZOLE [Concomitant]
     Active Substance: OMEPRAZOLE
     Dosage: STRENGTH: 20MG, ONE TO BE TAKEN EACH DAY
  4. MORPHINE SULFATE [Concomitant]
     Active Substance: MORPHINE SULFATE
     Dosage: STRENGTH: 10MG/5ML, TAKE 1.25-2.5 MLS UP TO FOUR TIMES A DAY AS REQUIRED
  5. CARBOPLATIN [Concomitant]
     Active Substance: CARBOPLATIN
     Dosage: STRENGTH: 450MG/45ML, VIALS, 08-OCT-2025 CYCLE 2 DAY 1 450 MG IV INFUS
  6. BECLOMETHASONE\FORMOTEROL [Concomitant]
     Active Substance: BECLOMETHASONE\FORMOTEROL
     Dosage: NEXTHALER 100MICROGRAMS/DOSE/6MICROGRAMS/DOSE DRY
  7. SODIUM CHLORIDE [Concomitant]
     Active Substance: SODIUM CHLORIDE
     Dosage: 29-OCT-2025 CYCLE 3 DAY 1 250 ML IV INFUS
  8. METOCLOPRAMIDE [Concomitant]
     Active Substance: METOCLOPRAMIDE
     Dosage: STRENGTH: 10MG, 29-OCT-2025 CYCLE 3 DAY 1 10 MG ORAL
  9. DEXAMETHASONE [Concomitant]
     Active Substance: DEXAMETHASONE
     Dosage: STRENGTH: 2MG, 29-OCT-2025 CYCLE 3 DAY 1 8 MG ORAL 29-OCT-2025 CYCLE 3 DAY 1 4 MG ORAL
  10. ONDANSETRON [Concomitant]
     Active Substance: ONDANSETRON
     Dosage: STRENGTH: 4MG
  11. HYDROCORTISONE [Concomitant]
     Active Substance: HYDROCORTISONE
     Dosage: 29-OCT-2025 CYCLE 3 DAY 1 100 MG IV INJ
  12. ATORVASTATIN [Concomitant]
     Active Substance: ATORVASTATIN
     Dosage: STRENGTH: 20 MG TABLETS ONE TO BE TAKEN EACH NIGHT
  13. CANDESARTAN [Concomitant]
     Active Substance: CANDESARTAN
     Dosage: STRENGTH: 8 MG TABLETS ONE TO BE TAKEN AT NIGHT-HELD
  14. ACETAMINOPHEN [Concomitant]
     Active Substance: ACETAMINOPHEN
     Dosage: STRENGTH: 500 MG TABLETS, TWO TO BE TAKEN EVERY 4-6 HOURS UP TO FOUR TIMES A DAY
  15. MORPHINE SULFATE [Concomitant]
     Active Substance: MORPHINE SULFATE
     Dosage: 10 MG MODIFIED-RELEASE CAPSULES ONE CAPSULE TO BE TAKEN EVERY 12 HOURS

REACTIONS (2)
  - Cardiotoxicity [Unknown]
  - Left ventricular dysfunction [Unknown]
